FAERS Safety Report 5879970-0 (Version None)
Quarter: 2008Q3

REPORT INFORMATION
  Report Type: 
  Country: None (occurrence: None)
  Receive Date: 20080912
  Receipt Date: 20080902
  Transmission Date: 20090109
  Serious: Yes (Hospitalization)
  Sender: FDA-Public Use
  Company Number: US-ELI_LILLY_AND_COMPANY-US200809000408

PATIENT
  Sex: Female
  Weight: 115.65 kg

DRUGS (15)
  1. BYETTA [Suspect]
     Indication: TYPE 2 DIABETES MELLITUS
     Dosage: 5 UG, 2/D
     Route: 058
     Dates: start: 20070101, end: 20070101
  2. BYETTA [Suspect]
     Dosage: 10 UG, 2/D
     Route: 058
     Dates: start: 20070101
  3. THEOPHYLLINE [Concomitant]
     Indication: ASTHMA
     Dosage: 300 MG, DAILY (1/D)
     Route: 048
  4. LASIX [Concomitant]
     Dosage: 40 MG, DAILY (1/D)
     Route: 048
  5. BENTYL [Concomitant]
     Dosage: 40 MG, DAILY (1/D)
     Route: 048
  6. MOTRIN [Concomitant]
     Dosage: 800 MG, AS NEEDED
     Route: 048
  7. ESTRADIOL [Concomitant]
     Dosage: UNK, DAILY (1/D)
     Route: 048
  8. QUINIDINE HCL [Concomitant]
     Dosage: 900 MG, DAILY (1/D)
     Route: 048
  9. ZANTAC [Concomitant]
     Dosage: 300 MG, DAILY (1/D)
     Route: 048
  10. POTASSIUM CHLORIDE [Concomitant]
     Dosage: 10 MG, DAILY (1/D)
     Route: 048
  11. XANAX [Concomitant]
     Dosage: 0.5 MG, AS NEEDED
     Route: 048
  12. COZAAR [Concomitant]
     Indication: BLOOD PRESSURE
     Dosage: 50 MG, DAILY (1/D)
     Route: 048
  13. ADVAIR DISKUS 100/50 [Concomitant]
     Dosage: UNK, AS NEEDED
  14. MAXALT                                  /NET/ [Concomitant]
     Indication: MIGRAINE
     Dosage: 10 MG, AS NEEDED
     Route: 048
  15. NOVOLOG MIX 70/30 [Concomitant]
     Indication: TYPE 2 DIABETES MELLITUS
     Dosage: 110 U, DAILY (1/D)
     Route: 058

REACTIONS (10)
  - BLOOD GLUCOSE DECREASED [None]
  - BLOOD GLUCOSE INCREASED [None]
  - CALCINOSIS [None]
  - CHOLELITHIASIS [None]
  - DIARRHOEA [None]
  - DIZZINESS [None]
  - NAUSEA [None]
  - PAIN [None]
  - STOMACH DISCOMFORT [None]
  - WEIGHT DECREASED [None]
